FAERS Safety Report 5051678-3 (Version None)
Quarter: 2006Q3

REPORT INFORMATION
  Report Type: 
  Country: None (occurrence: None)
  Receive Date: 20060712
  Receipt Date: 20060712
  Transmission Date: 20061208
  Serious: Yes (Death)
  Sender: FDA-Public Use
  Company Number: None

PATIENT
  Sex: Male
  Weight: 84.8226 kg

DRUGS (3)
  1. VANCOMYCIN [Suspect]
     Indication: LOCALISED INFECTION
     Dosage: 1 G BY LEVEL IV
     Route: 042
     Dates: start: 20060501, end: 20060528
  2. ZOSYN [Suspect]
     Indication: LOCALISED INFECTION
     Dosage: 2.25 GM Q6 IV
     Route: 042
     Dates: start: 20060520, end: 20060526
  3. CLINDAMYCIN [Suspect]
     Dosage: 300 MG D8
     Dates: start: 20060428, end: 20060501

REACTIONS (6)
  - ACIDOSIS [None]
  - ATRIAL FIBRILLATION [None]
  - CLOSTRIDIAL INFECTION [None]
  - HYPOGLYCAEMIA [None]
  - HYPOTENSION [None]
  - TACHYCARDIA [None]
